FAERS Safety Report 11184020 (Version 2)
Quarter: 2015Q3

REPORT INFORMATION
  Report Type: Spontaneous
  Country: US (occurrence: US)
  Receive Date: 20150612
  Receipt Date: 20150714
  Transmission Date: 20151125
  Serious: No
  Sender: FDA-Public Use
  Company Number: US-LEO PHARMA-234813

PATIENT
  Age: 77 Year
  Sex: Female

DRUGS (1)
  1. CALCIPOTRIENE CREAM 0.005% [Suspect]
     Active Substance: CALCIPOTRIENE
     Indication: DOWLING-DEGOS DISEASE
     Route: 061
     Dates: start: 20150515, end: 20150520

REACTIONS (3)
  - Blister [Recovered/Resolved]
  - Product use issue [Unknown]
  - Genital blister [Recovered/Resolved]

NARRATIVE: CASE EVENT DATE: 20150520
